FAERS Safety Report 25416300 (Version 1)
Quarter: 2025Q2

REPORT INFORMATION
  Report Type: Report from Study
  Country: JP (occurrence: None)
  Receive Date: 20250610
  Receipt Date: 20250610
  Transmission Date: 20250716
  Serious: Yes (Other)
  Sender: HARMAN FINOCHEM
  Company Number: JP-Harman-000110

PATIENT

DRUGS (2)
  1. METFORMIN [Suspect]
     Active Substance: METFORMIN HYDROCHLORIDE
     Indication: Neoplasm
     Dosage: THE TREATMENT CYCLE WAS REPEATED EVERY 2 WEEKS
     Route: 048
  2. NIVOLUMAB [Concomitant]
     Active Substance: NIVOLUMAB
     Indication: Neoplasm

REACTIONS (5)
  - Lactic acidosis [Unknown]
  - Pancreatic enzymes increased [Unknown]
  - Hepatic function abnormal [Unknown]
  - Off label use [Unknown]
  - Toxicity to various agents [Unknown]
